FAERS Safety Report 8392703-1 (Version None)
Quarter: 2012Q2

REPORT INFORMATION
  Report Type: 
  Country: None (occurrence: None)
  Receive Date: 20120525
  Receipt Date: 20120525
  Transmission Date: 20120825
  Serious: Yes (Other)
  Sender: FDA-Public Use
  Company Number: None

PATIENT
  Sex: Male
  Weight: 63.5036 kg

DRUGS (2)
  1. TRAMADOL HCL [Suspect]
     Indication: PAIN
     Dosage: 50MG 1 TABLET EVERY 6 HRS BY MOUTH
     Route: 048
     Dates: start: 20111001, end: 20120401
  2. MELOXICAM [Suspect]
     Indication: ARTHRITIS
     Dosage: 15 MG 1/2 TABLET EVERY DAY BY MOUTH
     Route: 048
     Dates: start: 20111001

REACTIONS (14)
  - WEIGHT DECREASED [None]
  - HEADACHE [None]
  - SPONDYLITIS [None]
  - CONFUSIONAL STATE [None]
  - MOOD SWINGS [None]
  - TREMOR [None]
  - ABDOMINAL PAIN UPPER [None]
  - DIARRHOEA HAEMORRHAGIC [None]
  - ABASIA [None]
  - INSOMNIA [None]
  - PAIN [None]
  - ARTHRITIS [None]
  - MUSCLE SPASMS [None]
  - DYSURIA [None]
